FAERS Safety Report 10724466 (Version 1)
Quarter: 2015Q1

REPORT INFORMATION
  Report Type: Spontaneous
  Country: US (occurrence: US)
  Receive Date: 20150120
  Receipt Date: 20150120
  Transmission Date: 20150721
  Serious: Yes (Death)
  Sender: FDA-Public Use
  Company Number: US-BAYER-2015-005408

PATIENT
  Age: 34 Year
  Sex: Female

DRUGS (3)
  1. ACETAMINOPHEN W/HYDROCODONE [Suspect]
     Active Substance: ACETAMINOPHEN\HYDROCODONE
     Route: 065
  2. ROMILAR [Suspect]
     Active Substance: DEXTROMETHORPHAN HYDROBROMIDE
     Route: 065
  3. LORAZEPAM. [Suspect]
     Active Substance: LORAZEPAM
     Route: 065

REACTIONS (1)
  - Toxicity to various agents [Fatal]
